FAERS Safety Report 16851857 (Version 2)
Quarter: 2019Q4

REPORT INFORMATION
  Report Type: Spontaneous
  Country: JP (occurrence: JP)
  Receive Date: 20190925
  Receipt Date: 20191107
  Transmission Date: 20200122
  Serious: Yes (Other)
  Sender: FDA-Public Use
  Company Number: JP-DSJP-DSJ-2019-136144AA

PATIENT

DRUGS (3)
  1. ANTIFUNGAL DRUG [Concomitant]
     Indication: PNEUMONIA
  2. ANTIFUNGAL DRUG [Concomitant]
     Indication: FUNGAEMIA
     Dosage: UNK
     Route: 065
     Dates: start: 2018
  3. LIXIANA OD TABLETS [Suspect]
     Active Substance: EDOXABAN TOSYLATE
     Indication: EMBOLISM VENOUS
     Dosage: UNK, QD
     Route: 048
     Dates: start: 201806

REACTIONS (1)
  - Renal impairment [Recovering/Resolving]

NARRATIVE: CASE EVENT DATE: 2018
